FAERS Safety Report 7249569-2 (Version None)
Quarter: 2011Q1

REPORT INFORMATION
  Report Type: 
  Country: None (occurrence: None)
  Receive Date: 20110128
  Receipt Date: 20101215
  Transmission Date: 20110831
  Serious: Yes (Hospitalization, Other)
  Sender: FDA-Public Use
  Company Number: US-BAYER-201024039NA

PATIENT
  Sex: Female
  Weight: 57.143 kg

DRUGS (6)
  1. YAZ [Suspect]
     Indication: PRODUCT USED FOR UNKNOWN INDICATION
     Route: 048
     Dates: start: 20070521, end: 20090206
  2. YASMIN [Suspect]
     Indication: PRODUCT USED FOR UNKNOWN INDICATION
     Route: 048
     Dates: start: 20070521, end: 20090206
  3. CLONAZEPAM [Concomitant]
     Dosage: 1 MG, UNK
     Dates: start: 20080502
  4. OCELLA [Suspect]
     Indication: PRODUCT USED FOR UNKNOWN INDICATION
     Dates: start: 20070521, end: 20090206
  5. PREVACID [Concomitant]
     Dosage: UNK
     Dates: start: 20080501
  6. ALPRAZOLAM [Concomitant]
     Dosage: 1 MG, UNK
     Dates: start: 20080502

REACTIONS (3)
  - CHOLECYSTITIS CHRONIC [None]
  - NAUSEA [None]
  - CHOLESTEROSIS [None]
